FAERS Safety Report 5489689-6 (Version None)
Quarter: 2007Q4

REPORT INFORMATION
  Report Type: 
  Country: None (occurrence: None)
  Receive Date: 20071010
  Receipt Date: 20070404
  Transmission Date: 20080405
  Serious: Yes (Hospitalization)
  Sender: FDA-Public Use
  Company Number: 2007SP006211

PATIENT
  Age: 42 Year
  Sex: Female
  Weight: 67.586 kg

DRUGS (2)
  1. PROVENTIL-HFA [Suspect]
     Indication: ASTHMA
     Dosage: PO
     Route: 048
  2. PROVENTIL [Concomitant]

REACTIONS (1)
  - THERAPEUTIC PRODUCT INEFFECTIVE [None]
